FAERS Safety Report 16784973 (Version 2)
Quarter: 2019Q3

REPORT INFORMATION
  Report Type: Spontaneous
  Country: CN (occurrence: CN)
  Receive Date: 20190909
  Receipt Date: 20190920
  Transmission Date: 20191005
  Serious: Yes (Hospitalization, Other)
  Sender: FDA-Public Use
  Company Number: CN-GILEAD-2019-0426700

PATIENT

DRUGS (1)
  1. ADEFOVIR DIPIVOXIL. [Suspect]
     Active Substance: ADEFOVIR DIPIVOXIL
     Indication: CHRONIC HEPATITIS B
     Dosage: 10 UNK
     Route: 065

REACTIONS (21)
  - Renal tubular acidosis [Unknown]
  - Iron deficiency anaemia [Unknown]
  - Blood potassium decreased [Unknown]
  - Urine phosphorus increased [Unknown]
  - Protein urine present [Unknown]
  - Osteoporosis [Unknown]
  - Fanconi syndrome [Unknown]
  - Bone density decreased [Unknown]
  - Gait disturbance [Unknown]
  - Metabolic acidosis [Unknown]
  - Blood chloride decreased [Unknown]
  - Urine calcium increased [Unknown]
  - Urine uric acid increased [Unknown]
  - Pain [Unknown]
  - Arthralgia [Recovering/Resolving]
  - Blood uric acid decreased [Unknown]
  - Blood phosphorus decreased [Unknown]
  - Blood calcium decreased [Unknown]
  - Bone pain [Unknown]
  - Marrow hyperplasia [Unknown]
  - Glucose urine present [Unknown]

NARRATIVE: CASE EVENT DATE: 2013
